FAERS Safety Report 6342209-6 (Version None)
Quarter: 2009Q3

REPORT INFORMATION
  Report Type: 
  Country: None (occurrence: None)
  Receive Date: 20090903
  Receipt Date: 20090903
  Transmission Date: 20100115
  Serious: Yes (Other)
  Sender: FDA-Public Use
  Company Number: None

PATIENT
  Age: 39 Year
  Sex: Female
  Weight: 58.9676 kg

DRUGS (1)
  1. CHANTIX [Suspect]
     Indication: SMOKING CESSATION THERAPY
     Dosage: 1 MG BID PO
     Route: 048
     Dates: start: 20090720, end: 20090806

REACTIONS (6)
  - ABNORMAL BEHAVIOUR [None]
  - ANXIETY [None]
  - CRYING [None]
  - DEPRESSION [None]
  - IMPULSIVE BEHAVIOUR [None]
  - MENTAL DISORDER [None]
